FAERS Safety Report 8150363-9 (Version None)
Quarter: 2012Q1

REPORT INFORMATION
  Report Type: 
  Country: None (occurrence: None)
  Receive Date: 20120220
  Receipt Date: 20120217
  Transmission Date: 20120608
  Serious: Yes (Hospitalization)
  Sender: FDA-Public Use
  Company Number: US-PFIZER INC-2012043676

PATIENT
  Sex: Male
  Weight: 96.599 kg

DRUGS (7)
  1. MORPHINE [Concomitant]
     Indication: PAIN
     Dosage: 30 MG, 3X/DAY
  2. IMITREX [Concomitant]
     Indication: MIGRAINE
     Dosage: UNK
  3. CHANTIX [Suspect]
     Dosage: UNK
     Route: 048
     Dates: start: 20110601, end: 20110701
  4. CHANTIX [Suspect]
     Indication: SMOKING CESSATION THERAPY
     Dosage: UNK
     Route: 048
     Dates: start: 20070101, end: 20080201
  5. GABAPENTIN [Concomitant]
     Indication: NEUROPATHY PERIPHERAL
     Dosage: 40 MG, 3X/DAY
  6. VERAPAMIL [Concomitant]
     Indication: MIGRAINE
     Dosage: 240 MG,DAILY
  7. PERCOCET [Concomitant]
     Indication: PAIN
     Dosage: [OXYCODONE 10MG] /[ACETAMINOPHEN 325MG], AS NEEDED

REACTIONS (1)
  - BACK DISORDER [None]
